FAERS Safety Report 8281840-8 (Version None)
Quarter: 2012Q2

REPORT INFORMATION
  Report Type: 
  Country: None (occurrence: None)
  Receive Date: 20120410
  Receipt Date: 20120331
  Transmission Date: 20120825
  Serious: Yes (Death)
  Sender: FDA-Public Use
  Company Number: 2006JP004086

PATIENT
  Age: 65 Year
  Sex: Male
  Weight: 67 kg

DRUGS (9)
  1. PREDNISOLONE [Concomitant]
  2. CEFOZOPRAN (CEFOZOPRAN) [Concomitant]
  3. DIFLUCAN [Concomitant]
  4. FUNGUARD (MICAFUNGIN) INJECTION [Suspect]
     Indication: FUNGAL INFECTION
     Dosage: 150 MG, /D, IV DRIP ; 300 MG, /D, IV DRIP
     Route: 041
     Dates: start: 20060908, end: 20060914
  5. FUNGUARD (MICAFUNGIN) INJECTION [Suspect]
     Indication: FUNGAL INFECTION
     Dosage: 150 MG, /D, IV DRIP ; 300 MG, /D, IV DRIP
     Route: 041
     Dates: start: 20060831, end: 20060907
  6. PAZUCROSS (PAZUFLOXACIN) [Concomitant]
  7. MEROPENEM [Concomitant]
  8. NEU-UP (NARTOGRASTIM) [Concomitant]
  9. CEFEPIME [Concomitant]

REACTIONS (2)
  - BACTERIAL SEPSIS [None]
  - UPPER GASTROINTESTINAL HAEMORRHAGE [None]
